FAERS Safety Report 20523407 (Version 3)
Quarter: 2025Q2

REPORT INFORMATION
  Report Type: Spontaneous
  Country: JP (occurrence: JP)
  Receive Date: 20220228
  Receipt Date: 20250528
  Transmission Date: 20250717
  Serious: Yes (Other)
  Sender: JOHNSON AND JOHNSON
  Company Number: JP-JNJFOC-20220245554

PATIENT
  Sex: Female

DRUGS (8)
  1. TRACLEER [Suspect]
     Active Substance: BOSENTAN
     Indication: Systemic scleroderma
     Route: 048
     Dates: start: 20211125, end: 20211219
  2. TRACLEER [Suspect]
     Active Substance: BOSENTAN
     Indication: Skin ulcer
     Route: 048
     Dates: start: 20211220, end: 202201
  3. TRACLEER [Suspect]
     Active Substance: BOSENTAN
     Route: 048
     Dates: start: 202201, end: 202202
  4. TRACLEER [Suspect]
     Active Substance: BOSENTAN
     Route: 048
     Dates: start: 20211118, end: 202201
  5. TRACLEER [Suspect]
     Active Substance: BOSENTAN
     Route: 048
     Dates: start: 202202
  6. TRACLEER [Suspect]
     Active Substance: BOSENTAN
     Route: 048
     Dates: start: 20220125
  7. TRACLEER [Suspect]
     Active Substance: BOSENTAN
     Route: 048
     Dates: start: 202201
  8. BERAPROST SODIUM [Suspect]
     Active Substance: BERAPROST SODIUM
     Indication: Product used for unknown indication
     Route: 048

REACTIONS (2)
  - Scleroderma associated digital ulcer [Unknown]
  - Interstitial lung disease [Recovered/Resolved]

NARRATIVE: CASE EVENT DATE: 20220101
